FAERS Safety Report 15306098 (Version 2)
Quarter: 2019Q2

REPORT INFORMATION
  Report Type: Spontaneous
  Country: US (occurrence: US)
  Receive Date: 20180822
  Receipt Date: 20190429
  Transmission Date: 20190711
  Serious: No
  Sender: FDA-Public Use
  Company Number: US-PFIZER INC-2016533393

PATIENT
  Age: 75 Year
  Sex: Female

DRUGS (10)
  1. DOXEPIN [Concomitant]
     Active Substance: DOXEPIN
     Dosage: 100 MG, 1X/DAY, (2 DAILY - BEDTIME)
  2. LISINOPRIL. [Concomitant]
     Active Substance: LISINOPRIL
     Indication: BLOOD PRESSURE ABNORMAL
     Dosage: 60 MG, DAILY,  (3 DAILY- 2 MORNING + 1 BED TIME)
  3. LYRICA [Suspect]
     Active Substance: PREGABALIN
     Indication: FIBROMYALGIA
     Dosage: 200 MG, TWICE A DAY (2 DAILY - 1AM + 1 PM)
     Route: 048
  4. PAXIL [Concomitant]
     Active Substance: PAROXETINE HYDROCHLORIDE
     Dosage: 40 MG, 1X/DAY, (1 TABLET-BEDTIME)
  5. DICLOFENAC SODIUM. [Concomitant]
     Active Substance: DICLOFENAC SODIUM
     Dosage: 150 MG, DAILY, (2 DAILY)
  6. SIMVASTATIN. [Concomitant]
     Active Substance: SIMVASTATIN
     Indication: BLOOD CHOLESTEROL ABNORMAL
     Dosage: 40 MG, 1X/DAY, (1 DAILY- BEDTIME)
  7. POTASSIUM [Concomitant]
     Active Substance: POTASSIUM
     Dosage: 595 MG, DAILY
  8. FUROSEMIDE. [Concomitant]
     Active Substance: FUROSEMIDE
     Indication: DIURETIC THERAPY
     Dosage: 80 MG, 1X/DAY, (1 DAILY- MORNING)
  9. CALCIUM + VITAMIN D3 [Concomitant]
     Active Substance: CALCIUM CARBONATE\CHOLECALCIFEROL
     Dosage: DAILY, (2 DAILY), [CALCIUM1200MG/ VITAMIN D3 1600IU]
  10. FISH OIL 1-A-DAY + VITAMIN D3 [Concomitant]
     Dosage: UNK, DAILY (2 DAILY) [FISH OIL 2400MG/ VITAMIN D3 4000IU]

REACTIONS (1)
  - Pain [Unknown]
